FAERS Safety Report 15592818 (Version 1)
Quarter: 2018Q4

REPORT INFORMATION
  Report Type: Report from Study
  Country: ES (occurrence: ES)
  Receive Date: 20181107
  Receipt Date: 20181107
  Transmission Date: 20190205
  Serious: Yes (Hospitalization)
  Sender: FDA-Public Use
  Company Number: ES-TEVA-2018-ES-971825

PATIENT
  Age: 67 Year
  Sex: Female

DRUGS (2)
  1. FENTANILO (1543A) [Suspect]
     Active Substance: FENTANYL
     Indication: JOINT SURGERY
     Dosage: 20MCG INTRADURAL
     Route: 037
     Dates: start: 20181002, end: 20181002
  2. CEFAZOLINA (583A) [Suspect]
     Active Substance: CEFAZOLIN
     Indication: ANTIBIOTIC PROPHYLAXIS
     Dosage: 1G CADA 8 HORAS
     Route: 042
     Dates: start: 20181002, end: 20181004

REACTIONS (1)
  - Hepatitis [Recovering/Resolving]

NARRATIVE: CASE EVENT DATE: 20181003
